FAERS Safety Report 10956779 (Version 1)
Quarter: 2015Q1

REPORT INFORMATION
  Report Type: Spontaneous
  Country: US (occurrence: US)
  Receive Date: 20150326
  Receipt Date: 20150326
  Transmission Date: 20150721
  Serious: No
  Sender: FDA-Public Use
  Company Number: US-MYLANLABS-2014S1015229

PATIENT
  Age: 68 Year
  Sex: Female
  Weight: 58.96 kg

DRUGS (11)
  1. XANAX [Concomitant]
     Active Substance: ALPRAZOLAM
     Dosage: 1 MG, TID
  2. EMSAM [Suspect]
     Active Substance: SELEGILINE
     Dosage: 6 MG,QD
     Route: 062
     Dates: start: 20140622, end: 20140820
  3. EMSAM [Suspect]
     Active Substance: SELEGILINE
     Indication: PANIC DISORDER
  4. EMSAM [Suspect]
     Active Substance: SELEGILINE
     Indication: ANXIETY
  5. PRINIVIL [Concomitant]
     Active Substance: LISINOPRIL
     Dosage: UNK
     Route: 048
  6. ATIVAN [Concomitant]
     Active Substance: LORAZEPAM
     Dosage: UNK
     Route: 048
  7. EMSAM [Suspect]
     Active Substance: SELEGILINE
     Dosage: 9 MG, QD
     Route: 062
     Dates: start: 20140630, end: 20140820
  8. EMSAM [Suspect]
     Active Substance: SELEGILINE
     Indication: PANIC DISORDER
  9. EMSAM [Suspect]
     Active Substance: SELEGILINE
     Indication: DEPRESSION
  10. EMSAM [Suspect]
     Active Substance: SELEGILINE
     Indication: DEPRESSION
  11. EMSAM [Suspect]
     Active Substance: SELEGILINE
     Indication: ANXIETY

REACTIONS (9)
  - Application site erythema [Recovered/Resolved]
  - Initial insomnia [Not Recovered/Not Resolved]
  - Drug ineffective [Not Recovered/Not Resolved]
  - Depression [Not Recovered/Not Resolved]
  - Panic disorder [Not Recovered/Not Resolved]
  - Nervousness [Not Recovered/Not Resolved]
  - Skin hyperpigmentation [Not Recovered/Not Resolved]
  - Anxiety [Not Recovered/Not Resolved]
  - Vision blurred [Recovering/Resolving]

NARRATIVE: CASE EVENT DATE: 20140622
